FAERS Safety Report 5555933-X (Version None)
Quarter: 2007Q4

REPORT INFORMATION
  Report Type: 
  Country: None (occurrence: None)
  Receive Date: 20071213
  Receipt Date: 20071203
  Transmission Date: 20080405
  Serious: Yes (Hospitalization)
  Sender: FDA-Public Use
  Company Number: FR-ABBOTT-07P-056-0426938-00

PATIENT
  Sex: Female

DRUGS (4)
  1. DEPAKENE [Suspect]
     Indication: EPILEPSY
     Route: 048
  2. CARBAMAZEPINE [Suspect]
     Indication: EPILEPSY
     Route: 048
     Dates: end: 20071029
  3. LAMOTRIGINE [Suspect]
     Indication: EPILEPSY
     Route: 048
     Dates: end: 20071029
  4. LAMOTRIGINE [Suspect]
     Route: 048
     Dates: end: 20071029

REACTIONS (7)
  - AGITATION [None]
  - HYPERTHERMIA [None]
  - MALAISE [None]
  - NEUTROPENIA [None]
  - PETIT MAL EPILEPSY [None]
  - PHOTOPHOBIA [None]
  - VOMITING [None]
